FAERS Safety Report 7290651-1 (Version None)
Quarter: 2011Q1

REPORT INFORMATION
  Report Type: 
  Country: None (occurrence: None)
  Receive Date: 20110131
  Receipt Date: 20110118
  Transmission Date: 20110831
  Serious: Yes (Other)
  Sender: FDA-Public Use
  Company Number: 2011P1004011

PATIENT
  Age: 77 Year
  Sex: Female
  Weight: 77.1115 kg

DRUGS (10)
  1. CYCLOBENZAPRINE HCL TABLETS USP 10 MG (NO PREF. NAME) [Suspect]
     Indication: BACK PAIN
     Dosage: 10 MG; PRN; PO
     Route: 048
     Dates: start: 20040101
  2. CYCLOBENZAPRINE HCL TABLETS USP 10 MG (NO PREF. NAME) [Suspect]
     Indication: MUSCLE SPASMS
     Dosage: 10 MG; PRN; PO
     Route: 048
     Dates: start: 20040101
  3. ASCORBIC ACID [Concomitant]
  4. LEVOTHYROXINE SODIUM [Concomitant]
  5. WARFARIN 2.5 MG [Concomitant]
  6. MAGNESIUM [Concomitant]
  7. LOSARTAN POTASSIUM [Concomitant]
  8. VITAMIN D [Concomitant]
  9. TRAMADOL (NO PREF. NAME) [Suspect]
     Dosage: 50 MG; PRN; PO
     Route: 048
     Dates: start: 20040101
  10. MULTAQ [Concomitant]

REACTIONS (5)
  - KNEE ARTHROPLASTY [None]
  - CHOLECYSTECTOMY [None]
  - THYROIDECTOMY [None]
  - SOMNOLENCE [None]
  - POSTOPERATIVE THROMBOSIS [None]
